FAERS Safety Report 17842442 (Version 1)
Quarter: 2020Q2

REPORT INFORMATION
  Report Type: Spontaneous
  Country: SG (occurrence: SG)
  Receive Date: 20200529
  Receipt Date: 20200529
  Transmission Date: 20200714
  Serious: Yes (Other)
  Sender: FDA-Public Use
  Company Number: SG-B.I. PHARMACEUTICALS,INC./RIDGEFIELD-2020-BI-027000

PATIENT
  Age: 79 Year
  Sex: Female

DRUGS (1)
  1. JARDIANCE [Suspect]
     Active Substance: EMPAGLIFLOZIN
     Indication: PRODUCT USED FOR UNKNOWN INDICATION
     Route: 065
     Dates: end: 202002

REACTIONS (3)
  - Skin abrasion [Unknown]
  - Rash [Unknown]
  - Pollakiuria [Unknown]

NARRATIVE: CASE EVENT DATE: 20200212
